FAERS Safety Report 9769052 (Version 1)
Quarter: 2013Q4

REPORT INFORMATION
  Report Type: Report from Study
  Country: US (occurrence: US)
  Receive Date: 20131218
  Receipt Date: 20131218
  Transmission Date: 20140711
  Serious: Yes (Hospitalization)
  Sender: FDA-Public Use
  Company Number: US-JNJFOC-20131206590

PATIENT
  Age: 57 Year
  Sex: Female
  Weight: 71.22 kg

DRUGS (1)
  1. XARELTO [Suspect]
     Indication: THROMBOSIS
     Route: 048
     Dates: start: 20131208

REACTIONS (2)
  - Malaise [Recovering/Resolving]
  - Drug dose omission [Not Recovered/Not Resolved]
